FAERS Safety Report 19755064 (Version 1)
Quarter: 2021Q3

REPORT INFORMATION
  Report Type: Spontaneous
  Country: FR (occurrence: FR)
  Receive Date: 20210827
  Receipt Date: 20210827
  Transmission Date: 20211014
  Serious: Yes (Hospitalization)
  Sender: FDA-Public Use
  Company Number: FR-TEVA-2021-FR-1945363

PATIENT
  Age: 0 Year
  Sex: Female

DRUGS (2)
  1. CHLORHYDRATE DE DOXORUBICINE [Suspect]
     Active Substance: DOXORUBICIN HYDROCHLORIDE
     Indication: SARCOMA
     Dosage: 4 CURES , UNIT DOSE : 50 MG/M2
     Route: 064
     Dates: start: 20200323, end: 20200602
  2. IFOSFAMIDE. [Suspect]
     Active Substance: IFOSFAMIDE
     Indication: SARCOMA
     Dosage: 4 CURES , UNIT DOSE : 2.5 MG/M2
     Route: 064
     Dates: start: 20200324, end: 20200604

REACTIONS (3)
  - Anaemia [Recovered/Resolved]
  - Growth retardation [Recovered/Resolved]
  - Premature baby [Recovered/Resolved]

NARRATIVE: CASE EVENT DATE: 20200606
